FAERS Safety Report 13457023 (Version 1)
Quarter: 2017Q2

REPORT INFORMATION
  Report Type: Spontaneous
  Country: US (occurrence: US)
  Receive Date: 20170419
  Receipt Date: 20170419
  Transmission Date: 20170830
  Serious: Yes (Disabling, Other)
  Sender: FDA-Public Use
  Company Number: US-REGENERON PHARMACEUTICALS, INC.-2017-14512

PATIENT

DRUGS (1)
  1. EYLEA [Suspect]
     Active Substance: AFLIBERCEPT
     Indication: NEOVASCULAR AGE-RELATED MACULAR DEGENERATION
     Dosage: 2 MG MILLIGRAM(S), EVERY 5 WEEKS, OD
     Route: 031
     Dates: start: 20160526, end: 20161212

REACTIONS (6)
  - Iridocyclitis [Recovered/Resolved]
  - Vitreous floaters [Unknown]
  - Hypopyon [Unknown]
  - Blindness transient [Unknown]
  - Retinal fibrosis [Unknown]
  - Vitreous disorder [Unknown]

NARRATIVE: CASE EVENT DATE: 20161214
